FAERS Safety Report 9214778 (Version 2)
Quarter: 2013Q4

REPORT INFORMATION
  Report Type: Spontaneous
  Country: US (occurrence: US)
  Receive Date: 20130405
  Receipt Date: 20131029
  Transmission Date: 20140711
  Serious: Yes (Other)
  Sender: FDA-Public Use
  Company Number: US-BAYER-2013-041139

PATIENT
  Sex: Female

DRUGS (4)
  1. YAZ [Suspect]
  2. YASMIN [Suspect]
  3. LISINOPRIL [Concomitant]
     Dosage: 30 MG, UNK
     Dates: start: 20080708, end: 20080909
  4. NAPROXEN [Concomitant]
     Dosage: 500 MG, UNK
     Dates: start: 20080920

REACTIONS (7)
  - Cholecystitis chronic [None]
  - Gallbladder disorder [None]
  - Injury [None]
  - Pain [None]
  - Anhedonia [None]
  - Emotional distress [None]
  - Anxiety [None]
